FAERS Safety Report 24884229 (Version 1)
Quarter: 2025Q1

REPORT INFORMATION
  Report Type: Spontaneous
  Country: US (occurrence: US)
  Receive Date: 20250124
  Receipt Date: 20250124
  Transmission Date: 20250409
  Serious: Yes (Other)
  Sender: AMGEN
  Company Number: US-AMGEN-USASP2025009102

PATIENT
  Age: 23 Year
  Sex: Female

DRUGS (6)
  1. ROMIPLOSTIM [Suspect]
     Active Substance: ROMIPLOSTIM
     Indication: Thrombocytopenia
     Dosage: 3 MICROGRAM/KILOGRAM, QWK
     Route: 058
  2. PREDNISONE [Suspect]
     Active Substance: PREDNISONE
     Indication: Myelosuppression
     Route: 065
  3. VINCRISTINE [Concomitant]
     Active Substance: VINCRISTINE
     Route: 065
  4. ASPARAGINASE [Concomitant]
     Active Substance: ASPARAGINASE
     Route: 065
  5. DAUNORUBICIN [Concomitant]
     Active Substance: DAUNORUBICIN
     Route: 065
  6. DASATINIB [Concomitant]
     Active Substance: DASATINIB
     Route: 065

REACTIONS (4)
  - Pulmonary haemorrhage [Unknown]
  - Thrombocytopenia [Unknown]
  - Lower gastrointestinal haemorrhage [Unknown]
  - Off label use [Unknown]
